FAERS Safety Report 24825028 (Version 9)
Quarter: 2025Q4

REPORT INFORMATION
  Report Type: Report from Study
  Country: US (occurrence: None)
  Receive Date: 20250109
  Receipt Date: 20251103
  Transmission Date: 20260118
  Serious: Yes (Congenital Anomaly, Other)
  Sender: UCB
  Company Number: US-UCBSA-2024059408

PATIENT
  Age: 7 Year

DRUGS (35)
  1. FENFLURAMINE [Suspect]
     Active Substance: FENFLURAMINE
     Indication: Seizure
     Dosage: 0.67 MG/KG/DAY; 19.8 MG/DAY
  2. FENFLURAMINE [Suspect]
     Active Substance: FENFLURAMINE
     Indication: Lennox-Gastaut syndrome
     Dosage: 4.5 MILLILITER, 2X/DAY (BID)
  3. FENFLURAMINE [Suspect]
     Active Substance: FENFLURAMINE
     Dosage: 4.5 MILLILITER, 2X/DAY (BID)
  4. FENFLURAMINE [Suspect]
     Active Substance: FENFLURAMINE
     Dosage: 9.9 MILLIGRAM, 2X/DAY (BID)
  5. FENFLURAMINE [Suspect]
     Active Substance: FENFLURAMINE
     Dosage: 4.5 MILLILITER, 2X/DAY (BID)
  6. FENFLURAMINE [Suspect]
     Active Substance: FENFLURAMINE
     Dosage: 4.5 MILLILITER, 2X/DAY (BID)
  7. FENFLURAMINE [Suspect]
     Active Substance: FENFLURAMINE
     Dosage: 4.5 MILLILITER, 2X/DAY (BID)
  8. VIMPAT [Suspect]
     Active Substance: LACOSAMIDE
     Indication: Seizure
     Dosage: UNK
  9. VIMPAT [Suspect]
     Active Substance: LACOSAMIDE
     Dosage: 5 MILLILITER, 2X/DAY (BID)X 1 WEEK
  10. VIMPAT [Suspect]
     Active Substance: LACOSAMIDE
     Dosage: 6 MILLILITER, 2X/DAY (BID)X 1 WEEK
  11. VIMPAT [Suspect]
     Active Substance: LACOSAMIDE
     Dosage: 7 MILLILITER, 2X/DAY (BID)
  12. LEVETIRACETAM [Suspect]
     Active Substance: LEVETIRACETAM
     Indication: Product used for unknown indication
     Dosage: UNK
  13. ONFI [Concomitant]
     Active Substance: CLOBAZAM
     Indication: Product used for unknown indication
     Dosage: UNK
  14. ONFI [Concomitant]
     Active Substance: CLOBAZAM
     Dosage: 10 MILLIGRAM QHS
  15. ONFI [Concomitant]
     Active Substance: CLOBAZAM
     Dosage: 10 MILLIGRAM, ONCE DAILY (QD)
  16. TOPAMAX [Concomitant]
     Active Substance: TOPIRAMATE
     Indication: Product used for unknown indication
  17. TOPAMAX [Concomitant]
     Active Substance: TOPIRAMATE
     Dosage: 100 MILLIGRAM, 2X/DAY (BID)
  18. TOPAMAX [Concomitant]
     Active Substance: TOPIRAMATE
     Dosage: 0 MG TABLET, GIVE 3 TABLETS BY MOUTH TWICE DAILY
  19. CLONAZEPAM [Concomitant]
     Active Substance: CLONAZEPAM
  20. TYLENOL [Concomitant]
     Active Substance: ACETAMINOPHEN
     Indication: Product used for unknown indication
     Dosage: 320 MILLIGRAM
  21. TYLENOL [Concomitant]
     Active Substance: ACETAMINOPHEN
     Dosage: 10 MILLIGRAM/KILOGRAM EVERY 6 HOUR OR AS PER NEEDED
  22. TYLENOL [Concomitant]
     Active Substance: ACETAMINOPHEN
     Indication: Product used for unknown indication
     Dosage: 325 MILLIGRAM
  23. TYLENOL [Concomitant]
     Active Substance: ACETAMINOPHEN
     Dosage: 10 MILLIGRAM/KILOGRAM EVERY 6 HOURS OR AS PER NEEDED
  24. CANNABIDIOL [Concomitant]
     Active Substance: CANNABIDIOL
     Indication: Product used for unknown indication
     Dosage: 300 MILLIGRAM, 2X/DAY (BID)
  25. BENADRYL [Concomitant]
     Active Substance: DIPHENHYDRAMINE HYDROCHLORIDE
     Indication: Product used for unknown indication
     Dosage: 1 MILLIGRAM/KILOGRAM, EVERY 6 HOURS OR AS PER NEEDED
  26. BENADRYL [Concomitant]
     Active Substance: DIPHENHYDRAMINE HYDROCHLORIDE
     Indication: Product used for unknown indication
     Dosage: 1 MILLIGRAM/KILOGRAM, EVERY 6 HOURS OR AS PER NEEDED
  27. BENADRYL [Concomitant]
     Active Substance: DIPHENHYDRAMINE HYDROCHLORIDE
     Indication: Product used for unknown indication
     Dosage: 25 MILLIGRAM EVERY 6 HOURS OE AS PER NEEDED
  28. CARNITOR [Concomitant]
     Active Substance: LEVOCARNITINE
     Indication: Product used for unknown indication
     Dosage: 500 MILLIGRAM, 2X/DAY (BID)
  29. CARNITOR [Concomitant]
     Active Substance: LEVOCARNITINE
     Dosage: 500 MILLIGRAM, 2X/DAY (BID) SUGAR FREE
  30. VERSED [Concomitant]
     Active Substance: MIDAZOLAM HYDROCHLORIDE
     Indication: Product used for unknown indication
     Dosage: 5.75 MILLIGRAM
  31. VERSED [Concomitant]
     Active Substance: MIDAZOLAM HYDROCHLORIDE
     Indication: Product used for unknown indication
     Dosage: 0.2 MILLIGRAM/KILOGRAM, ONCE AS PER NEEDED
  32. DIASTAT ACUDIAL [Concomitant]
     Active Substance: DIAZEPAM
     Indication: Seizure
     Dosage: 5-7.5-10 MG RECTAL KIT, INSERT 10 MG INTO THE RECTUM 1 (ONE) TIME IF NEEDED FOR SEIZURES
  33. EPIDIOLEX [Concomitant]
     Active Substance: CANNABIDIOL
     Indication: Product used for unknown indication
     Dosage: 3 MILLILITER, 2X/DAY (BID)
  34. EPIPEN [Concomitant]
     Active Substance: EPINEPHRINE
     Indication: Product used for unknown indication
     Dosage: 0.3 MILLILITER NTO THE SHOULDER, THIGH, OR BUTTOCKS 1
  35. VALTOCO [Concomitant]
     Active Substance: DIAZEPAM
     Indication: Product used for unknown indication
     Dosage: 10 MILLIGRAM INTO AFFECTED NOSTRIL 1 TIME IF NEEDED

REACTIONS (12)
  - Seizure [Recovered/Resolved]
  - Hypothalamic hamartoma [Not Recovered/Not Resolved]
  - Tumour ablation [Recovered/Resolved]
  - Epilepsy [Unknown]
  - Seizure cluster [Unknown]
  - Brain operation [Not Recovered/Not Resolved]
  - Atonic seizures [Unknown]
  - Behaviour disorder [Unknown]
  - Fall [Unknown]
  - Aggression [Not Recovered/Not Resolved]
  - Affect lability [Unknown]
  - Drug level decreased [Unknown]
